FAERS Safety Report 7352952-8 (Version None)
Quarter: 2011Q1

REPORT INFORMATION
  Report Type: 
  Country: None (occurrence: None)
  Receive Date: 20110315
  Receipt Date: 20110309
  Transmission Date: 20110831
  Serious: Yes (Hospitalization)
  Sender: FDA-Public Use
  Company Number: JP-ROCHE-764378

PATIENT
  Sex: Female

DRUGS (1)
  1. TAMIFLU [Suspect]
     Indication: INFLUENZA
     Dosage: REPORTED AS: TAMIFLU DRY SYRUP 3%
     Route: 048
     Dates: start: 20110226, end: 20110228

REACTIONS (1)
  - KAWASAKI'S DISEASE [None]
